FAERS Safety Report 7327088-2 (Version None)
Quarter: 2011Q1

REPORT INFORMATION
  Report Type: 
  Country: None (occurrence: None)
  Receive Date: 20110223
  Receipt Date: 20110217
  Transmission Date: 20110831
  Serious: Yes (Hospitalization)
  Sender: FDA-Public Use
  Company Number: USA/USA/11/0017461

PATIENT
  Age: 78 Year
  Sex: Female
  Weight: 55.7924 kg

DRUGS (1)
  1. FLUOXETINE [Suspect]
     Indication: DEPRESSION
     Dosage: 20 MG, 1 IN 1 D, ORAL
     Route: 048
     Dates: start: 20110101

REACTIONS (6)
  - ANXIETY [None]
  - EATING DISORDER [None]
  - WEIGHT INCREASED [None]
  - FATIGUE [None]
  - ANGER [None]
  - FRUSTRATION [None]
